FAERS Safety Report 5833991-2 (Version None)
Quarter: 2008Q3

REPORT INFORMATION
  Report Type: 
  Country: None (occurrence: None)
  Receive Date: 20080731
  Receipt Date: 20080716
  Transmission Date: 20090109
  Serious: Yes (Death, Life-Threatening)
  Sender: FDA-Public Use
  Company Number: 2008AL008513

PATIENT
  Age: 66 Year
  Sex: Female
  Weight: 48.9885 kg

DRUGS (2)
  1. DIGOXIN [Suspect]
     Indication: ARRHYTHMIA
     Dosage: 0.25MG DAILY, PO
     Route: 048
     Dates: start: 20000423, end: 20071202
  2. LANOXIN [Concomitant]

REACTIONS (8)
  - CHEST PAIN [None]
  - CONFUSIONAL STATE [None]
  - DIZZINESS [None]
  - MUSCULAR WEAKNESS [None]
  - NAUSEA [None]
  - PHOTOPSIA [None]
  - SENSATION OF HEAVINESS [None]
  - VOMITING [None]
